FAERS Safety Report 9295748 (Version 2)
Quarter: 2021Q1

REPORT INFORMATION
  Report Type: Spontaneous
  Country: CA (occurrence: CA)
  Receive Date: 20130517
  Receipt Date: 20210302
  Transmission Date: 20210420
  Serious: Yes (Other)
  Sender: FDA-Public Use
  Company Number: CA-PFIZER INC-2013146344

PATIENT
  Age: 8 Year
  Sex: Male

DRUGS (20)
  1. VANCOMYCIN [Suspect]
     Active Substance: VANCOMYCIN
     Indication: STAPHYLOCOCCAL INFECTION
     Dosage: 400 MG, 4X/DAY (400 MG, (7 TOTAL DOSES), FREQ: QID)
     Route: 042
  2. DIMENHYDRINATE. [Concomitant]
     Active Substance: DIMENHYDRINATE
     Dosage: 1 TOTAL DOSE, POSTOP VP SHUNT EXTERNALIZATION
     Route: 065
  3. CLOXACILLIN [Concomitant]
     Active Substance: CLOXACILLIN
     Indication: STAPHYLOCOCCAL INFECTION
     Dosage: STARTED ON DAY 10
     Route: 065
  4. FENTANYL. [Concomitant]
     Active Substance: FENTANYL
     Dosage: FREQ: NOT REPORTED, NOT REPORTED
  5. VANCOMYCIN [Suspect]
     Active Substance: VANCOMYCIN
     Dosage: UNK
  6. CLOXACILLIN [Concomitant]
     Active Substance: CLOXACILLIN
     Indication: SHUNT INFECTION
     Dosage: UNK
     Route: 065
  7. CLOXACILLIN [Concomitant]
     Active Substance: CLOXACILLIN
     Dosage: FREQ: NOT REPORTED, NOT REPORTED
  8. DIMENHYDRINATE. [Concomitant]
     Active Substance: DIMENHYDRINATE
     Dosage: 1 DF, UNK
  9. KETOROLAC [Concomitant]
     Active Substance: KETOROLAC TROMETHAMINE
     Dosage: ONE TOTAL DOSE, POSTOP VP SHUNT EXTERNALIZATION
     Route: 065
  10. FENTANYL. [Concomitant]
     Active Substance: FENTANYL
     Indication: GENERAL ANAESTHESIA
     Dosage: UNK
  11. FENTANYL CITRATE. [Concomitant]
     Active Substance: FENTANYL CITRATE
     Indication: GENERAL ANAESTHESIA
     Dosage: UNK
     Route: 065
  12. ROCURONIUM [Concomitant]
     Active Substance: ROCURONIUM BROMIDE
     Dosage: 20 ML/KG, NOT REPORTED
  13. VANCOMYCIN [Suspect]
     Active Substance: VANCOMYCIN
     Indication: SHUNT INFECTION
     Dosage: 400 MG EVERY 6 HOURS (60 MG/KG PER DAY)
     Route: 042
  14. PROPOFOL. [Concomitant]
     Active Substance: PROPOFOL
     Indication: GENERAL ANAESTHESIA
     Dosage: UNK
     Route: 065
  15. ISOFLURANE. [Concomitant]
     Active Substance: ISOFLURANE
     Dosage: FREQ: NOT REPORTED, NOT REPORTED
     Route: 055
  16. PROPOFOL. [Concomitant]
     Active Substance: PROPOFOL
     Dosage: FREQ: NOT REPORTED, NOT REPORTED
  17. CLOXACILLIN [Concomitant]
     Active Substance: CLOXACILLIN
     Indication: SHUNT INFECTION
     Dosage: UNK
  18. ISOFLURANE. [Concomitant]
     Active Substance: ISOFLURANE
     Indication: GENERAL ANAESTHESIA
     Dosage: UNK
     Route: 055
  19. KETOROLAC [Concomitant]
     Active Substance: KETOROLAC TROMETHAMINE
     Dosage: 1 DF, UNK
  20. ROCURONIUM [Concomitant]
     Active Substance: ROCURONIUM BROMIDE
     Indication: GENERAL ANAESTHESIA
     Dosage: UNK
     Route: 065

REACTIONS (4)
  - Tubulointerstitial nephritis [Recovered/Resolved]
  - Acute kidney injury [Recovered/Resolved]
  - Renal tubular necrosis [Recovered/Resolved]
  - Toxicity to various agents [Recovered/Resolved]
